FAERS Safety Report 8943791 (Version 3)
Quarter: 2013Q1

REPORT INFORMATION
  Report Type: Spontaneous
  Country: US (occurrence: US)
  Receive Date: 20121204
  Receipt Date: 20130116
  Transmission Date: 20140127
  Serious: Yes (Other)
  Sender: FDA-Public Use
  Company Number: US-MEDICIS-2012P1060872

PATIENT
  Age: 42 Year
  Sex: Male
  Weight: 83.92 kg

DRUGS (4)
  1. ZYCLARA [Suspect]
     Route: 061
     Dates: start: 201210, end: 20121011
  2. MULTIVITAMIN [Concomitant]
  3. VITAMIN D [Concomitant]
  4. VITAMIN C [Concomitant]

REACTIONS (9)
  - Malignant melanoma [Not Recovered/Not Resolved]
  - Application site vesicles [Recovered/Resolved]
  - Application site papules [Recovered/Resolved]
  - Application site irritation [Recovered/Resolved]
  - Application site swelling [Recovered/Resolved]
  - Application site erythema [Recovering/Resolving]
  - Application site scab [Recovered/Resolved]
  - Pyrexia [Recovered/Resolved]
  - Arthralgia [Recovered/Resolved]
